FAERS Safety Report 13973107 (Version 5)
Quarter: 2018Q2

REPORT INFORMATION
  Report Type: Spontaneous
  Country: JP (occurrence: JP)
  Receive Date: 20170915
  Receipt Date: 20180619
  Transmission Date: 20180711
  Serious: Yes (Hospitalization, Other)
  Sender: FDA-Public Use
  Company Number: JP-009507513-1709JPN001371J

PATIENT
  Age: 77 Year
  Sex: Male
  Weight: 80 kg

DRUGS (64)
  1. CUBICIN [Suspect]
     Active Substance: DAPTOMYCIN
     Dosage: 470 MG, UNK
     Route: 042
     Dates: start: 20170904, end: 20170904
  2. CUBICIN [Suspect]
     Active Substance: DAPTOMYCIN
     Dosage: 470 MG, UNK
     Route: 042
     Dates: start: 20170906, end: 20170906
  3. CUBICIN [Suspect]
     Active Substance: DAPTOMYCIN
     Dosage: 470 MG, UNK
     Dates: start: 20170907, end: 20170907
  4. CUBICIN [Suspect]
     Active Substance: DAPTOMYCIN
     Dosage: 620 MG, UNK
     Route: 042
     Dates: start: 20170908, end: 20170908
  5. ATORVASTATIN [Suspect]
     Active Substance: ATORVASTATIN
     Indication: HYPERCHOLESTEROLAEMIA
     Dosage: 10 MG, QD
     Route: 048
     Dates: end: 20170915
  6. SELOKEN [Concomitant]
     Active Substance: METOPROLOL
     Indication: HYPERTENSION
     Dosage: 20 MG, QD, WHEN DIALYSIS WAS PERFORMED (ON MONDAY, WEDNESDAY AND FRIDAY)
  7. ZYVOX [Concomitant]
     Active Substance: LINEZOLID
     Dosage: 600 MG, QD
     Route: 048
     Dates: start: 20170914, end: 20170916
  8. VANCOMYCIN HYDROCHLORIDE. [Concomitant]
     Active Substance: VANCOMYCIN HYDROCHLORIDE
     Dosage: UNK
     Route: 051
     Dates: start: 20170917, end: 20170917
  9. VANCOMYCIN HYDROCHLORIDE. [Concomitant]
     Active Substance: VANCOMYCIN HYDROCHLORIDE
     Dosage: 1.2 DF, UNK
     Route: 051
     Dates: start: 20170927, end: 20170927
  10. SEISHOKU [Concomitant]
     Active Substance: SODIUM CHLORIDE
     Dosage: 9.4 ML, UNK
     Route: 051
     Dates: start: 20170904, end: 20170904
  11. SEISHOKU [Concomitant]
     Active Substance: SODIUM CHLORIDE
     Dosage: 100 MG, UNK
     Route: 051
     Dates: start: 20170906, end: 20170906
  12. LANSOPRAZOLE OD [Suspect]
     Active Substance: LANSOPRAZOLE
     Indication: PROPHYLAXIS
     Dosage: 15 MG, QD
     Route: 048
     Dates: end: 20170915
  13. SELOKEN [Concomitant]
     Active Substance: METOPROLOL
     Dosage: 20 MG, BID, WHEN DIALYSIS WAS NOT PERFORMED (ON SUNDAY, TUESDAY, THURSDAY AND SATURDAY)
     Route: 048
  14. ZYVOX [Concomitant]
     Active Substance: LINEZOLID
     Dosage: 600 MG, BID
     Route: 048
     Dates: start: 20170907, end: 20170911
  15. ZYVOX [Concomitant]
     Active Substance: LINEZOLID
     Dosage: 600 MG, QD
     Route: 048
     Dates: start: 20170918, end: 20170922
  16. DIQUAS [Concomitant]
     Active Substance: DIQUAFOSOL TETRASODIUM
     Indication: DRY EYE
     Dosage: BILATERALLY, AS NEEDED FOR DRY EYE
     Route: 047
  17. SEISHOKU [Concomitant]
     Active Substance: SODIUM CHLORIDE
     Dosage: 100 ML, UNK
     Route: 051
     Dates: start: 20170920, end: 20170920
  18. EFFIENT [Concomitant]
     Active Substance: PRASUGREL HYDROCHLORIDE
     Indication: CORONARY ARTERY STENOSIS
     Dosage: 3.75 MG, QD
     Route: 048
     Dates: start: 201602
  19. CALONAL [Concomitant]
     Active Substance: ACETAMINOPHEN
     Indication: PYREXIA
     Dosage: 500 MG, AS NEEDED FOR PYREXIA
     Route: 048
  20. PENLES [Concomitant]
     Active Substance: LIDOCAINE
     Indication: ANALGESIC THERAPY
     Dosage: 36 MG, PRN
     Route: 062
  21. VANCOMYCIN HYDROCHLORIDE. [Concomitant]
     Active Substance: VANCOMYCIN HYDROCHLORIDE
     Dosage: 1500 MG, UNK
     Dates: start: 20170904, end: 20170904
  22. VANCOMYCIN HYDROCHLORIDE. [Concomitant]
     Active Substance: VANCOMYCIN HYDROCHLORIDE
     Dosage: 1000 MG, UNK
     Route: 051
     Dates: start: 20170906, end: 20170906
  23. VANCOMYCIN HYDROCHLORIDE. [Concomitant]
     Active Substance: VANCOMYCIN HYDROCHLORIDE
     Dosage: 1500 MG, UNK
     Dates: start: 20170913, end: 20170913
  24. SEISHOKU [Concomitant]
     Active Substance: SODIUM CHLORIDE
     Dosage: 9.4 ML, UNK
     Route: 051
     Dates: start: 20170901, end: 20170901
  25. SEISHOKU [Concomitant]
     Active Substance: SODIUM CHLORIDE
     Dosage: 12.5 ML, UNK
     Dates: start: 20170908, end: 20170908
  26. SEISHOKU [Concomitant]
     Active Substance: SODIUM CHLORIDE
     Dosage: 9.4 ML, UNK
     Route: 051
     Dates: start: 20170911, end: 20170911
  27. CUBICIN [Suspect]
     Active Substance: DAPTOMYCIN
     Indication: STAPHYLOCOCCAL SEPSIS
     Dosage: 350 MG, UNK
     Route: 042
     Dates: start: 20170825, end: 20170825
  28. CUBICIN [Suspect]
     Active Substance: DAPTOMYCIN
     Dosage: 470 MG, UNK
     Route: 042
     Dates: start: 20170901, end: 20170901
  29. EQUA [Suspect]
     Active Substance: VILDAGLIPTIN
     Indication: TYPE 2 DIABETES MELLITUS
     Dosage: 50 MG, QD
     Route: 048
     Dates: end: 20170926
  30. CLARITIN [Concomitant]
     Active Substance: LORATADINE
     Indication: PRURITUS
     Dosage: 10 MG, QD
     Route: 048
  31. BAYASPIRIN [Concomitant]
     Active Substance: ASPIRIN
     Indication: PROPHYLAXIS
     Dosage: 100 MG, QD
     Route: 048
     Dates: start: 201401
  32. ZYVOX [Concomitant]
     Active Substance: LINEZOLID
     Indication: STAPHYLOCOCCAL SEPSIS
     Dosage: UNK
     Route: 048
     Dates: start: 20160706
  33. VANCOMYCIN HYDROCHLORIDE. [Concomitant]
     Active Substance: VANCOMYCIN HYDROCHLORIDE
     Dosage: EVERY AFTER DIALYSIS
     Route: 051
     Dates: end: 20170824
  34. VANCOMYCIN HYDROCHLORIDE. [Concomitant]
     Active Substance: VANCOMYCIN HYDROCHLORIDE
     Dosage: 1.6 DF, UNK
     Route: 051
     Dates: start: 20170920, end: 20170920
  35. VANCOMYCIN HYDROCHLORIDE. [Concomitant]
     Active Substance: VANCOMYCIN HYDROCHLORIDE
     Dosage: 600 MG, UNK
     Route: 051
     Dates: start: 20170922, end: 20170922
  36. SEISHOKU [Concomitant]
     Active Substance: SODIUM CHLORIDE
     Dosage: 100 ML, UNK
     Route: 051
     Dates: start: 20170915, end: 20170915
  37. RISUMIC [Concomitant]
     Active Substance: AMEZINIUM METILSULFATE
     Indication: BLOOD PRESSURE DECREASED
     Dosage: 10 MG, PRN (FOR DIALYSIS)
     Route: 048
     Dates: start: 20160701
  38. SENNOSIDE [Concomitant]
     Active Substance: SENNOSIDES
     Indication: CONSTIPATION
     Dosage: 46 MG, AS NEEDED FOR CONSTIPATION
     Route: 048
  39. EMLA [Concomitant]
     Active Substance: LIDOCAINE\PRILOCAINE
     Indication: ANALGESIC THERAPY
     Dosage: AS NEEDED ON THE ARM
     Route: 061
  40. VANCOMYCIN HYDROCHLORIDE. [Concomitant]
     Active Substance: VANCOMYCIN HYDROCHLORIDE
     Dosage: 800 MG, UNK
     Route: 051
     Dates: start: 20170918, end: 20170918
  41. CUBICIN [Suspect]
     Active Substance: DAPTOMYCIN
     Dosage: 470 MG, UNK
     Route: 042
     Dates: start: 20170828, end: 20170828
  42. CUBICIN [Suspect]
     Active Substance: DAPTOMYCIN
     Dosage: 470 MG, UNK
     Route: 042
     Dates: start: 20170911, end: 20170911
  43. ZYVOX [Concomitant]
     Active Substance: LINEZOLID
     Dosage: 1200 MG, QD
     Route: 048
     Dates: start: 20170912, end: 20170913
  44. KARY UNI [Concomitant]
     Active Substance: PIRENOXINE
     Indication: CATARACT
     Dosage: BILATERALLY, ONCE DAILY
     Route: 047
  45. VANCOMYCIN HYDROCHLORIDE. [Concomitant]
     Active Substance: VANCOMYCIN HYDROCHLORIDE
     Dosage: 1000 MG, UNK
     Route: 051
     Dates: start: 20170915, end: 20170915
  46. VANCOMYCIN HYDROCHLORIDE. [Concomitant]
     Active Substance: VANCOMYCIN HYDROCHLORIDE
     Dosage: 1.2 DF, UNK
     Route: 051
     Dates: start: 20170925, end: 20170925
  47. SEISHOKU [Concomitant]
     Active Substance: SODIUM CHLORIDE
     Dosage: 100 ML, UNK
     Dates: start: 20170904, end: 20170904
  48. SEISHOKU [Concomitant]
     Active Substance: SODIUM CHLORIDE
     Dosage: 250 ML, PRN
     Route: 051
     Dates: start: 20170915, end: 20170915
  49. SEISHOKU [Concomitant]
     Active Substance: SODIUM CHLORIDE
     Dosage: 100 ML, UNK
     Route: 051
     Dates: start: 20170922, end: 20170922
  50. SEISHOKU [Concomitant]
     Active Substance: SODIUM CHLORIDE
     Dosage: 100 ML, UNK
     Route: 051
     Dates: start: 20170925, end: 20170925
  51. TOYOFAROL [Concomitant]
     Active Substance: ALFACALCIDOL
     Indication: RENAL FAILURE
     Dosage: 0.25 MG, QD, WHEN DIALYSIS WAS NOT PERFORMED (ON SUNDAY, TUESDAY, THURSDAY AND SATURDAY)
     Route: 048
  52. ZYVOX [Concomitant]
     Active Substance: LINEZOLID
     Dosage: 600 MG, QD
     Route: 048
     Dates: start: 20170903, end: 20170906
  53. ZYVOX [Concomitant]
     Active Substance: LINEZOLID
     Dosage: UNK
     Route: 048
     Dates: start: 20170917, end: 20170917
  54. VANCOMYCIN HYDROCHLORIDE. [Concomitant]
     Active Substance: VANCOMYCIN HYDROCHLORIDE
     Indication: STAPHYLOCOCCAL SEPSIS
     Dosage: UNK
     Route: 051
     Dates: start: 20160627
  55. SEISHOKU [Concomitant]
     Active Substance: SODIUM CHLORIDE
     Indication: VEHICLE SOLUTION USE
     Dosage: 9.4 ML, UNK
     Route: 051
     Dates: start: 20170828, end: 20170828
  56. SEISHOKU [Concomitant]
     Active Substance: SODIUM CHLORIDE
     Dosage: 9.4 ML, UNK
     Route: 051
     Dates: start: 20170830, end: 20170830
  57. SEISHOKU [Concomitant]
     Active Substance: SODIUM CHLORIDE
     Dosage: 9.4 ML, UNK
     Route: 051
     Dates: start: 20170906, end: 20170906
  58. SEISHOKU [Concomitant]
     Active Substance: SODIUM CHLORIDE
     Dosage: 100 ML, UNK
     Route: 051
     Dates: start: 20170918, end: 20170918
  59. CUBICIN [Suspect]
     Active Substance: DAPTOMYCIN
     Dosage: 470 MG, UNK
     Route: 042
     Dates: start: 20170830, end: 20170830
  60. SUREPOST [Concomitant]
     Active Substance: REPAGLINIDE
     Indication: TYPE 2 DIABETES MELLITUS
     Dosage: 0.5 MG, BID
     Route: 048
     Dates: start: 20160630
  61. DIART [Concomitant]
     Active Substance: AZOSEMIDE
     Indication: OEDEMA
     Dosage: 60 MG, QD
     Route: 048
  62. ZYVOX [Concomitant]
     Active Substance: LINEZOLID
     Dosage: UNK
     Route: 048
     Dates: end: 20170822
  63. VANCOMYCIN HYDROCHLORIDE. [Concomitant]
     Active Substance: VANCOMYCIN HYDROCHLORIDE
     Dosage: UNK
     Route: 051
     Dates: start: 20170914, end: 20170914
  64. SEISHOKU [Concomitant]
     Active Substance: SODIUM CHLORIDE
     Dosage: 100 ML, UNK
     Route: 051
     Dates: start: 20170927, end: 20170927

REACTIONS (2)
  - Pyrexia [Recovering/Resolving]
  - Interstitial lung disease [Recovering/Resolving]

NARRATIVE: CASE EVENT DATE: 20170828
